FAERS Safety Report 23610079 (Version 1)
Quarter: 2024Q1

REPORT INFORMATION
  Report Type: Spontaneous
  Country: DE (occurrence: DE)
  Receive Date: 20240308
  Receipt Date: 20240308
  Transmission Date: 20240410
  Serious: Yes (Death, Other)
  Sender: FDA-Public Use
  Company Number: DE-GERMAN-LIT/DEU/24/0003805

PATIENT

DRUGS (1)
  1. AZACITIDINE [Suspect]
     Active Substance: AZACITIDINE
     Indication: Acute myeloid leukaemia
     Dosage: 75 MG/M2 ON DAYS 1 TO 7 IN A 28-DAY CYCLE
     Route: 042

REACTIONS (2)
  - Disease progression [Fatal]
  - Treatment failure [Fatal]
